FAERS Safety Report 21919694 (Version 1)
Quarter: 2023Q1

REPORT INFORMATION
  Report Type: Spontaneous
  Country: US (occurrence: US)
  Receive Date: 20230127
  Receipt Date: 20230127
  Transmission Date: 20230418
  Serious: No
  Sender: FDA-Public Use
  Company Number: US-MLMSERVICE-20221226-3996888-1

PATIENT
  Age: 14 Month
  Sex: Female
  Weight: 7 kg

DRUGS (4)
  1. MIRALAX [Suspect]
     Active Substance: POLYETHYLENE GLYCOL 3350
     Indication: Constipation
     Route: 048
  2. LACTULOSE [Suspect]
     Active Substance: LACTULOSE
     Indication: Constipation
     Route: 048
  3. IBUPROFEN [Concomitant]
     Active Substance: IBUPROFEN
     Indication: Pyrexia
     Dosage: ALTERNATING ORAL ACETAMINOPHEN 15 MG/KG AND IBUPROFEN 10 MG/KG EVERY SIX HOURS AS NEEDED
     Route: 048
  4. ACETAMINOPHEN [Concomitant]
     Active Substance: ACETAMINOPHEN
     Indication: Pyrexia
     Dosage: ALTERNATING ORAL ACETAMINOPHEN 15 MG/KG AND IBUPROFEN 10 MG/KG EVERY SIX HOURS AS NEEDED
     Route: 048

REACTIONS (2)
  - Drug intolerance [Unknown]
  - Vomiting [Unknown]
